FAERS Safety Report 8157852-1 (Version None)
Quarter: 2012Q1

REPORT INFORMATION
  Report Type: 
  Country: None (occurrence: None)
  Receive Date: 20120222
  Receipt Date: 20120220
  Transmission Date: 20120608
  Serious: Yes (Other)
  Sender: FDA-Public Use
  Company Number: CO-PFIZER INC-2012045605

PATIENT
  Age: 41 Year
  Sex: Female

DRUGS (3)
  1. COPAXONE [Concomitant]
     Indication: MULTIPLE SCLEROSIS
     Dosage: 20 MG, 1X/DAY
     Dates: start: 20120217
  2. LYRICA [Suspect]
     Indication: MULTIPLE SCLEROSIS
     Dosage: 150 MG, UNK
     Dates: start: 20100101
  3. LYRICA [Suspect]
     Indication: SLEEP DISORDER

REACTIONS (2)
  - MULTIPLE SCLEROSIS RELAPSE [None]
  - BURNING SENSATION [None]
